FAERS Safety Report 9364085 (Version 1)
Quarter: 2013Q2

REPORT INFORMATION
  Report Type: Report from Study
  Country: US (occurrence: US)
  Receive Date: 20130624
  Receipt Date: 20130624
  Transmission Date: 20140414
  Serious: Yes (Other)
  Sender: FDA-Public Use
  Company Number: US-TEVA-413474USA

PATIENT
  Age: 56 Year
  Sex: Female

DRUGS (3)
  1. BACLOFEN [Suspect]
     Route: 037
  2. AMPYRA (DALFAMPRIDINE) [Suspect]
     Dates: start: 2003, end: 201105
  3. GLATIRAMER ACETATE [Concomitant]

REACTIONS (5)
  - Subdural haematoma [Unknown]
  - Fall [Unknown]
  - Gait disturbance [Unknown]
  - Bladder disorder [Unknown]
  - Asthenia [Unknown]
